FAERS Safety Report 4357979-6 (Version None)
Quarter: 2004Q2

REPORT INFORMATION
  Report Type: 
  Country: None (occurrence: None)
  Receive Date: 20040510
  Receipt Date: 20040428
  Transmission Date: 20050107
  Serious: Yes (Death, Life-Threatening, Hospitalization)
  Sender: FDA-Public Use
  Company Number: 163-20785-04040657

PATIENT
  Age: 66 Year
  Sex: Male
  Weight: 107.5025 kg

DRUGS (7)
  1. THALOMID [Suspect]
     Indication: METASTATIC MALIGNANT MELANOMA
     Dosage: 100 MG, Q.D., ORAL
     Route: 048
     Dates: start: 20040218, end: 20040315
  2. TEMOZOLOMIDE (TEMOZOLOMIDE) [Suspect]
     Indication: METASTATIC MALIGNANT MELANOMA
     Dosage: 170 MG, Q.D., ORAL
     Route: 048
     Dates: start: 20040218, end: 20040315
  3. COREG [Concomitant]
  4. DIOVAN [Concomitant]
  5. DECADRON [Concomitant]
  6. REGLAN [Concomitant]
  7. ZOCOR [Concomitant]

REACTIONS (9)
  - ARRHYTHMIA [None]
  - ATRIAL FIBRILLATION [None]
  - CARDIAC FAILURE CONGESTIVE [None]
  - CAROTID BRUIT [None]
  - DYSPNOEA [None]
  - ELECTROCARDIOGRAM ABNORMAL [None]
  - FATIGUE [None]
  - GRAVITATIONAL OEDEMA [None]
  - JUGULAR VEIN DISTENSION [None]
